FAERS Safety Report 14199584 (Version 1)
Quarter: 2017Q4

REPORT INFORMATION
  Report Type: Spontaneous
  Country: US (occurrence: None)
  Receive Date: 20171116
  Receipt Date: 20171116
  Transmission Date: 20180321
  Serious: No
  Sender: FDA-Public Use
  Company Number: None

PATIENT
  Age: 82 Year
  Sex: Female

DRUGS (1)
  1. JAKAFI [Suspect]
     Active Substance: RUXOLITINIB
     Indication: POLYCYTHAEMIA
     Route: 048
     Dates: start: 20161104

REACTIONS (4)
  - Loss of personal independence in daily activities [None]
  - Dark circles under eyes [None]
  - Intellectual disability [None]
  - Personality change [None]

NARRATIVE: CASE EVENT DATE: 20171010
